FAERS Safety Report 9915357 (Version 1)
Quarter: 2014Q1

REPORT INFORMATION
  Report Type: Spontaneous
  Country: FR (occurrence: FR)
  Receive Date: 20140221
  Receipt Date: 20140221
  Transmission Date: 20141002
  Serious: Yes (Other)
  Sender: FDA-Public Use
  Company Number: FR-BIOGENIDEC-2014BI016330

PATIENT
  Age: 38 Year
  Sex: Female

DRUGS (5)
  1. TYSABRI [Suspect]
     Route: 042
     Dates: start: 200809
  2. CYMBALTA [Concomitant]
     Indication: DEPRESSION
     Dates: start: 20131017
  3. SEROPLEX [Concomitant]
     Indication: DEPRESSION
  4. FURADANTINE [Concomitant]
  5. OROKEN [Concomitant]

REACTIONS (1)
  - Tongue geographic [Not Recovered/Not Resolved]
